FAERS Safety Report 5200865-X (Version None)
Quarter: 2007Q1

REPORT INFORMATION
  Report Type: 
  Country: None (occurrence: None)
  Receive Date: 20070103
  Receipt Date: 20061218
  Transmission Date: 20070707
  Serious: Yes (Hospitalization)
  Sender: FDA-Public Use
  Company Number: DISGB-06-0730

PATIENT
  Age: 14 Year
  Sex: Male
  Weight: 41 kg

DRUGS (15)
  1. PROPOFOL ( PROPOFOL) ( 1 PERCENT) [Suspect]
     Indication: ANAESTHESIA
     Dosage: ONCE, INTRAVENOUS
     Route: 042
     Dates: start: 20061108, end: 20061108
  2. PROPOFOL ( PROPOFOL) ( 1 PERCENT) [Suspect]
     Indication: GASTRIC PERFORATION
     Dosage: ONCE, INTRAVENOUS
     Route: 042
     Dates: start: 20061108, end: 20061108
  3. PROPOFOL ( PROPOFOL) ( 1 PERCENT) [Suspect]
     Indication: INFLAMMATION
     Dosage: ONCE, INTRAVENOUS
     Route: 042
     Dates: start: 20061108, end: 20061108
  4. PROPOFOL ( PROPOFOL) ( 1 PERCENT) [Suspect]
     Indication: PROCEDURAL PAIN
     Dosage: ONCE, INTRAVENOUS
     Route: 042
     Dates: start: 20061108, end: 20061108
  5. SEVOFLURANE [Suspect]
     Indication: ANAESTHESIA
     Dosage: ONCE, INHALATION
     Route: 055
     Dates: start: 20061108, end: 20061108
  6. SEVOFLURANE [Suspect]
     Indication: GASTRIC PERFORATION
     Dosage: ONCE, INHALATION
     Route: 055
     Dates: start: 20061108, end: 20061108
  7. SEVOFLURANE [Suspect]
     Indication: INFLAMMATION
     Dosage: ONCE, INHALATION
     Route: 055
     Dates: start: 20061108, end: 20061108
  8. SEVOFLURANE [Suspect]
     Indication: PROCEDURAL PAIN
     Dosage: ONCE, INHALATION
     Route: 055
     Dates: start: 20061108, end: 20061108
  9. CEFUROXIME [Concomitant]
  10. DEXAMETHASONE [Concomitant]
  11. DICLOFENAC SODIUM [Concomitant]
  12. MIDAZOLAM HYDROCHLORIDE [Concomitant]
  13. MORPHINE [Concomitant]
  14. OMEPRAZOLE [Concomitant]
  15. PARACETAMOL [Concomitant]

REACTIONS (1)
  - HEPATOTOXICITY [None]
